FAERS Safety Report 16034678 (Version 1)
Quarter: 2019Q1

REPORT INFORMATION
  Report Type: Report from Study
  Country: CA (occurrence: CA)
  Receive Date: 20190305
  Receipt Date: 20190305
  Transmission Date: 20190418
  Serious: Yes (Hospitalization)
  Sender: FDA-Public Use
  Company Number: CA-CELGENEUS-CAN-20190207744

PATIENT
  Age: 66 Year
  Sex: Male
  Weight: 63.9 kg

DRUGS (13)
  1. CREON [Concomitant]
     Active Substance: PANCRELIPASE AMYLASE\PANCRELIPASE LIPASE\PANCRELIPASE PROTEASE
     Indication: ABDOMINAL DISTENSION
     Dosage: 2 TABLET
     Route: 048
     Dates: start: 201708
  2. HYDROMORPH CONTIN [Concomitant]
     Active Substance: HYDROMORPHONE
     Indication: PAIN
     Dosage: 6 MILLIGRAM
     Route: 048
     Dates: start: 20180115
  3. SYNTHROID [Concomitant]
     Active Substance: LEVOTHYROXINE SODIUM
     Indication: HYPOTHYROIDISM
     Dosage: 25 MICROGRAM
     Route: 048
     Dates: start: 2014
  4. CISPLATIN. [Suspect]
     Active Substance: CISPLATIN
     Indication: BILE DUCT CANCER
     Dosage: 42 MILLIGRAM
     Route: 065
     Dates: start: 20180309
  5. ABRAXANE [Suspect]
     Active Substance: PACLITAXEL
     Indication: BILE DUCT CANCER
     Dosage: 170 MILLIGRAM
     Route: 065
     Dates: start: 20180309
  6. ABRAXANE [Suspect]
     Active Substance: PACLITAXEL
     Dosage: 130 MILLIGRAM
     Route: 065
     Dates: start: 20190204
  7. LACTULOSE. [Concomitant]
     Active Substance: LACTULOSE
     Indication: CONSTIPATION
     Dosage: 90 MILLILITER
     Route: 048
     Dates: start: 20180305
  8. ONGLYZA [Concomitant]
     Active Substance: SAXAGLIPTIN HYDROCHLORIDE
     Indication: DIABETES MELLITUS
     Dosage: 5 MILLIGRAM
     Route: 048
     Dates: start: 20180427
  9. CISPLATIN. [Suspect]
     Active Substance: CISPLATIN
     Dosage: 42 MILLIGRAM
     Route: 065
     Dates: start: 20190204
  10. GEMCITABINE [Suspect]
     Active Substance: GEMCITABINE\GEMCITABINE HYDROCHLORIDE
     Dosage: 855 MILLIGRAM
     Route: 065
     Dates: start: 20190204
  11. GEMCITABINE [Suspect]
     Active Substance: GEMCITABINE\GEMCITABINE HYDROCHLORIDE
     Indication: BILE DUCT CANCER
     Dosage: 1349 MILLIGRAM
     Route: 065
     Dates: start: 20180309
  12. DOMPERIDONE [Concomitant]
     Active Substance: DOMPERIDONE
     Indication: ABDOMINAL DISTENSION
     Dosage: 30 MILLIGRAM
     Route: 048
     Dates: start: 201708
  13. HYDROMORPHONE [Concomitant]
     Active Substance: HYDROMORPHONE
     Indication: PAIN
     Dosage: 24 MILLIGRAM
     Route: 048
     Dates: start: 20180615

REACTIONS (1)
  - Pyrexia [Recovered/Resolved]

NARRATIVE: CASE EVENT DATE: 20190217
